FAERS Safety Report 17967487 (Version 1)
Quarter: 2020Q3

REPORT INFORMATION
  Report Type: Spontaneous
  Country: GB (occurrence: GB)
  Receive Date: 20200701
  Receipt Date: 20200701
  Transmission Date: 20201103
  Serious: Yes (Other)
  Sender: FDA-Public Use
  Company Number: GB-TEVA-2020-GB-1793000

PATIENT
  Age: 87 Year
  Sex: Female
  Weight: 50 kg

DRUGS (7)
  1. MACROGOL [Concomitant]
     Active Substance: POLYETHYLENE GLYCOLS
  2. CASSIA [Concomitant]
  3. RIVAROXABAN [Concomitant]
     Active Substance: RIVAROXABAN
  4. SITAGLIPTIN [Concomitant]
     Active Substance: SITAGLIPTIN
  5. METFORMIN [Concomitant]
     Active Substance: METFORMIN HYDROCHLORIDE
  6. LEVOTHYROXINE SODIUM. [Concomitant]
     Active Substance: LEVOTHYROXINE SODIUM
  7. OMEPRAZOLE. [Suspect]
     Active Substance: OMEPRAZOLE
     Indication: GASTROOESOPHAGEAL REFLUX DISEASE
     Dosage: 20 MILLIGRAM
     Route: 048
     Dates: end: 20200609

REACTIONS (1)
  - Hyperkalaemia [Not Recovered/Not Resolved]
